FAERS Safety Report 16122802 (Version 1)
Quarter: 2019Q1

REPORT INFORMATION
  Report Type: Spontaneous
  Country: FR (occurrence: FR)
  Receive Date: 20190327
  Receipt Date: 20190327
  Transmission Date: 20190418
  Serious: Yes (Hospitalization)
  Sender: FDA-Public Use
  Company Number: FR-TEVA-2019-FR-1029630

PATIENT
  Age: 89 Year
  Sex: Female

DRUGS (4)
  1. RIVASTIGMINE BASE [Suspect]
     Active Substance: RIVASTIGMINE
     Indication: DEMENTIA ALZHEIMER^S TYPE
     Dosage: SEE COMMENTS
     Route: 062
     Dates: start: 20190115
  2. BISOPROLOL ACCORD HEALTHCARE 2.5 MG, FILM-COATED TABLET [Suspect]
     Active Substance: BISOPROLOL FUMARATE
     Indication: HYPERTENSION
     Dosage: .5 DOSAGE FORMS DAILY;
     Route: 048
     Dates: start: 2017
  3. MOGADON 5 MG, COMPRESSED TABLET [Suspect]
     Active Substance: NITRAZEPAM
     Indication: DEPRESSION
     Dosage: 5 MILLIGRAM DAILY;
     Route: 048
     Dates: start: 2014
  4. ALPRAZOLAM. [Suspect]
     Active Substance: ALPRAZOLAM
     Indication: DEPRESSION
     Dosage: .25 MILLIGRAM DAILY;
     Route: 048
     Dates: start: 2007

REACTIONS (2)
  - Fall [Recovering/Resolving]
  - Orthostatic hypotension [Recovering/Resolving]

NARRATIVE: CASE EVENT DATE: 20190212
